FAERS Safety Report 12762686 (Version 3)
Quarter: 2017Q1

REPORT INFORMATION
  Report Type: Spontaneous
  Country: IT (occurrence: IT)
  Receive Date: 20160920
  Receipt Date: 20170124
  Transmission Date: 20170428
  Serious: Yes (Hospitalization, Other)
  Sender: FDA-Public Use
  Company Number: IT-PFIZER INC-2016435351

PATIENT
  Age: 85 Year
  Sex: Female

DRUGS (4)
  1. DIAZEPAM. [Suspect]
     Active Substance: DIAZEPAM
  2. MINIAS [Interacting]
     Active Substance: LORMETAZEPAM
  3. SEROQUEL [Interacting]
     Active Substance: QUETIAPINE FUMARATE
     Dosage: 37.5 MG, 1X/DAY
  4. TRITTICO [Interacting]
     Active Substance: TRAZODONE HYDROCHLORIDE
     Dosage: 60 MG, 1X/DAY

REACTIONS (3)
  - Depressed level of consciousness [Recovering/Resolving]
  - Drug interaction [Recovering/Resolving]
  - Sopor [Recovering/Resolving]

NARRATIVE: CASE EVENT DATE: 20160901
